FAERS Safety Report 20832515 (Version 5)
Quarter: 2022Q3

REPORT INFORMATION
  Report Type: Spontaneous
  Country: US (occurrence: US)
  Receive Date: 20220516
  Receipt Date: 20220915
  Transmission Date: 20221026
  Serious: Yes (Hospitalization, Other)
  Sender: FDA-Public Use
  Company Number: US-BRISTOL-MYERS SQUIBB COMPANY-2022-035584

PATIENT
  Age: 78 Year
  Sex: Female
  Weight: 44.90 kg

DRUGS (1)
  1. POMALYST [Suspect]
     Active Substance: POMALIDOMIDE
     Indication: Plasma cell myeloma
     Dosage: DOSE: 2 MILLIGRAM, FREQ: DAILY DAYS 1-21, EVERY 28 DAYS.?EXP.DATE:30-JUN-2025
     Route: 048
     Dates: start: 20220324

REACTIONS (15)
  - Neuropathy peripheral [Recovering/Resolving]
  - Pneumonia [Recovering/Resolving]
  - Tachycardia [Not Recovered/Not Resolved]
  - Pulmonary oedema [Not Recovered/Not Resolved]
  - Fatigue [Not Recovered/Not Resolved]
  - Asthenia [Not Recovered/Not Resolved]
  - Pruritus [Not Recovered/Not Resolved]
  - Abdominal distension [Not Recovered/Not Resolved]
  - Hypoaesthesia [Not Recovered/Not Resolved]
  - Respiratory disorder [Not Recovered/Not Resolved]
  - Dyspnoea [Not Recovered/Not Resolved]
  - Viral infection [Not Recovered/Not Resolved]
  - Tremor [Not Recovered/Not Resolved]
  - Nerve injury [Not Recovered/Not Resolved]
  - Limb discomfort [Not Recovered/Not Resolved]
